FAERS Safety Report 7991213-0 (Version None)
Quarter: 2011Q4

REPORT INFORMATION
  Report Type: 
  Country: None (occurrence: None)
  Receive Date: 20111219
  Receipt Date: 20111213
  Transmission Date: 20120403
  Serious: Yes (Other)
  Sender: FDA-Public Use
  Company Number: US-GLAXOSMITHKLINE-A0946613A

PATIENT
  Age: 48 Year
  Sex: Female

DRUGS (4)
  1. AVANDIA [Suspect]
     Indication: BLOOD GLUCOSE
     Route: 048
     Dates: start: 20100101, end: 20110101
  2. LISINOPRIL [Concomitant]
  3. JANUVIA [Concomitant]
  4. LOVASTATIN [Concomitant]

REACTIONS (3)
  - MYOCARDIAL INFARCTION [None]
  - VISUAL IMPAIRMENT [None]
  - DIABETES MELLITUS INADEQUATE CONTROL [None]
